FAERS Safety Report 25194853 (Version 1)
Quarter: 2025Q2

REPORT INFORMATION
  Report Type: Spontaneous
  Country: US (occurrence: US)
  Receive Date: 20250414
  Receipt Date: 20250414
  Transmission Date: 20250717
  Serious: Yes (Hospitalization)
  Sender: MERCK SHARP AND DOHME
  Company Number: US-009507513-2273782

PATIENT
  Age: 79 Year
  Sex: Female

DRUGS (1)
  1. PEMBROLIZUMAB [Suspect]
     Active Substance: PEMBROLIZUMAB
     Indication: Renal cell carcinoma
     Route: 065

REACTIONS (3)
  - Immune-mediated myocarditis [Not Recovered/Not Resolved]
  - Immune-mediated myositis [Not Recovered/Not Resolved]
  - Immune-mediated myasthenia gravis [Not Recovered/Not Resolved]
